FAERS Safety Report 8914415 (Version 1)
Quarter: 2012Q4

REPORT INFORMATION
  Report Type: 
  Country: US (occurrence: US)
  Receive Date: 20121116
  Receipt Date: 20121116
  Transmission Date: 20130627
  Serious: No
  Sender: FDA-Public Use
  Company Number: US-009507513-1211USA006042

PATIENT
  Sex: Female

DRUGS (3)
  1. PEG-INTRON [Suspect]
     Indication: HEPATITIS C
     Dosage: 80 Microgram, qw
     Route: 058
     Dates: start: 201208
  2. RIBAVIRIN [Suspect]
  3. TELAPREVIR [Concomitant]

REACTIONS (3)
  - Pruritus [Unknown]
  - Alopecia [Unknown]
  - Product quality issue [Unknown]
